FAERS Safety Report 11095693 (Version 2)
Quarter: 2015Q2

REPORT INFORMATION
  Report Type: Spontaneous
  Country: DE (occurrence: DE)
  Receive Date: 20150507
  Receipt Date: 20150512
  Transmission Date: 20150821
  Serious: Yes (Other)
  Sender: FDA-Public Use
  Company Number: GXKR2015DE002254

PATIENT
  Age: 52 Year
  Sex: Male

DRUGS (6)
  1. ALLOPURINOL. [Suspect]
     Active Substance: ALLOPURINOL
     Indication: HYPERURICAEMIA
     Route: 048
  2. OMEPRAZOLE. [Concomitant]
     Active Substance: OMEPRAZOLE
     Indication: PRODUCT USED FOR UNKNOWN INDICATION
     Dosage: 40 MG, QD
  3. DICLOFENAC [Suspect]
     Active Substance: DICLOFENAC
     Indication: BACK PAIN
     Dosage: IRREGULAR INTAKE UP TO 150 MG DAILY ON DEMAND, MOSTLY ON 3-4 DAYS/WEEK
     Route: 048
  4. HYDROCHLOROTHIAZIDE. [Suspect]
     Active Substance: HYDROCHLOROTHIAZIDE
     Indication: HYPERTENSION
     Dosage: 12.5 MG, QD IN THE EVENING
     Route: 048
  5. METOPROLOLSUCCINAAT RETARD [Suspect]
     Active Substance: METOPROLOL SUCCINATE
     Dosage: 100 MG, QD
     Route: 048
  6. IBUPROFEN. [Suspect]
     Active Substance: IBUPROFEN
     Indication: BACK PAIN
     Dosage: IRREGULAR INTAKE UP TO 1600 MG DAILY ON DEMAND, MOSTLY ON 3-4 DAYS/WEEK
     Route: 048

REACTIONS (8)
  - Depression [Recovering/Resolving]
  - Renal impairment [Recovering/Resolving]
  - Abdominal discomfort [Unknown]
  - Nocturia [Recovering/Resolving]
  - Sleep disorder [Recovering/Resolving]
  - Blood uric acid increased [Recovering/Resolving]
  - Apathy [Recovering/Resolving]
  - Decreased interest [Recovering/Resolving]
